FAERS Safety Report 21818644 (Version 1)
Quarter: 2023Q1

REPORT INFORMATION
  Report Type: Spontaneous
  Country: US (occurrence: US)
  Receive Date: 20230104
  Receipt Date: 20230104
  Transmission Date: 20230418
  Serious: Yes (Other)
  Sender: FDA-Public Use
  Company Number: US-INCYTE CORPORATION-2022IN012850

PATIENT

DRUGS (1)
  1. JAKAFI [Suspect]
     Active Substance: RUXOLITINIB
     Indication: Platelet count increased
     Dosage: 15 MILLIGRAM, QD
     Route: 065
     Dates: start: 2020, end: 2022

REACTIONS (4)
  - Colon cancer [Unknown]
  - Hypersensitivity [Unknown]
  - Anaemia [Unknown]
  - Off label use [Unknown]
